FAERS Safety Report 7306937-8 (Version None)
Quarter: 2011Q1

REPORT INFORMATION
  Report Type: 
  Country: None (occurrence: None)
  Receive Date: 20110223
  Receipt Date: 20110209
  Transmission Date: 20110831
  Serious: No
  Sender: FDA-Public Use
  Company Number: US-BIOGENIDEC-2011BI001775

PATIENT
  Age: 51 Year
  Sex: Female

DRUGS (3)
  1. TYSABRI [Suspect]
     Indication: MULTIPLE SCLEROSIS
     Route: 042
     Dates: start: 20100709
  2. AVONEX [Concomitant]
     Route: 030
     Dates: start: 20100701
  3. AVONEX [Concomitant]
     Indication: MULTIPLE SCLEROSIS
     Route: 030
     Dates: start: 20021122, end: 20051023

REACTIONS (3)
  - MENTAL IMPAIRMENT [None]
  - FATIGUE [None]
  - MEMORY IMPAIRMENT [None]
